FAERS Safety Report 11135179 (Version 2)
Quarter: 2015Q2

REPORT INFORMATION
  Report Type: Report from Study
  Country: CA (occurrence: CA)
  Receive Date: 20150525
  Receipt Date: 20150529
  Transmission Date: 20150821
  Serious: Yes (Other)
  Sender: FDA-Public Use
  Company Number: CA-JNJFOC-20141115467

PATIENT
  Age: 59 Year
  Sex: Male

DRUGS (3)
  1. ZYTIGA [Suspect]
     Active Substance: ABIRATERONE ACETATE
     Indication: PROSTATE CANCER METASTATIC
     Route: 048
     Dates: start: 201409
  2. PREDNISONE. [Concomitant]
     Active Substance: PREDNISONE
     Indication: PROSTATE CANCER METASTATIC
     Route: 048
  3. PREDNISONE. [Concomitant]
     Active Substance: PREDNISONE
     Indication: PROPHYLAXIS
     Route: 048

REACTIONS (14)
  - Blood potassium increased [Recovered/Resolved]
  - Platelet count increased [Not Recovered/Not Resolved]
  - Heart rate increased [Unknown]
  - Hypertension [Recovered/Resolved]
  - Blood lactate dehydrogenase increased [Unknown]
  - Bone pain [Unknown]
  - Metastases to spine [Not Recovered/Not Resolved]
  - Metastases to bone [Unknown]
  - Neck pain [Not Recovered/Not Resolved]
  - Prostatic specific antigen increased [Not Recovered/Not Resolved]
  - Malaise [Not Recovered/Not Resolved]
  - Musculoskeletal chest pain [Unknown]
  - Glomerular filtration rate increased [Not Recovered/Not Resolved]
  - Blood testosterone decreased [Not Recovered/Not Resolved]

NARRATIVE: CASE EVENT DATE: 20141121
